FAERS Safety Report 6307904-3 (Version None)
Quarter: 2009Q3

REPORT INFORMATION
  Report Type: 
  Country: None (occurrence: None)
  Receive Date: 20090812
  Receipt Date: 20090812
  Transmission Date: 20100115
  Serious: Yes (Other)
  Sender: FDA-Public Use
  Company Number: None

PATIENT
  Age: 42 Year
  Sex: Female
  Weight: 86.1834 kg

DRUGS (1)
  1. CYMBALTA [Suspect]
     Indication: DEPRESSION
     Dosage: 80MG DAILY PO
     Route: 048
     Dates: start: 20081015, end: 20090811

REACTIONS (10)
  - CONFUSIONAL STATE [None]
  - DECREASED APPETITE [None]
  - DRUG DOSE OMISSION [None]
  - DRUG WITHDRAWAL SYNDROME [None]
  - DYSPEPSIA [None]
  - FATIGUE [None]
  - HEADACHE [None]
  - IRRITABILITY [None]
  - MUSCLE TWITCHING [None]
  - PARAESTHESIA [None]
